FAERS Safety Report 16662493 (Version 1)
Quarter: 2019Q3

REPORT INFORMATION
  Report Type: Spontaneous
  Country: US (occurrence: US)
  Receive Date: 20190802
  Receipt Date: 20190802
  Transmission Date: 20191004
  Serious: Yes (Other)
  Sender: FDA-Public Use
  Company Number: None

PATIENT
  Age: 42 Year
  Sex: Male

DRUGS (3)
  1. ATOMOXETINE. [Suspect]
     Active Substance: ATOMOXETINE HYDROCHLORIDE
     Indication: ATTENTION DEFICIT/HYPERACTIVITY DISORDER
     Route: 048
  2. SEROQUEL [Concomitant]
     Active Substance: QUETIAPINE FUMARATE
  3. HYDROXYZINE 25MG TID PRN [Concomitant]

REACTIONS (10)
  - Depression [None]
  - Urinary hesitation [None]
  - Penile discharge [None]
  - Dysuria [None]
  - Penile pain [None]
  - Back pain [None]
  - Suicidal ideation [None]
  - Alcohol poisoning [None]
  - Incorrect product administration duration [None]
  - Pollakiuria [None]

NARRATIVE: CASE EVENT DATE: 20190408
